FAERS Safety Report 8499562-7 (Version None)
Quarter: 2012Q3

REPORT INFORMATION
  Report Type: 
  Country: None (occurrence: None)
  Receive Date: 20120710
  Receipt Date: 20120702
  Transmission Date: 20120928
  Serious: Yes (Other)
  Sender: FDA-Public Use
  Company Number: US-BRISTOL-MYERS SQUIBB COMPANY-16731838

PATIENT
  Age: 65 Year
  Sex: Female

DRUGS (1)
  1. BARACLUDE [Suspect]
     Dosage: THERAPY STARTED ON 30MARCH.

REACTIONS (4)
  - OCULAR ICTERUS [None]
  - ABDOMINAL PAIN UPPER [None]
  - HEADACHE [None]
  - DECREASED APPETITE [None]
